FAERS Safety Report 22610612 (Version 1)
Quarter: 2023Q2

REPORT INFORMATION
  Report Type: Report from Study
  Country: US (occurrence: US)
  Receive Date: 20230616
  Receipt Date: 20230616
  Transmission Date: 20230722
  Serious: Yes (Other)
  Sender: FDA-Public Use
  Company Number: US-JAZZ PHARMACEUTICALS-2023-US-012123

PATIENT
  Age: 33 Year
  Sex: Female

DRUGS (9)
  1. XYREM [Suspect]
     Active Substance: SODIUM OXYBATE
     Indication: Narcolepsy
  2. SODIUM OXYBATE [Suspect]
     Active Substance: SODIUM OXYBATE
     Indication: Narcolepsy
  3. PAROXETINE HYDROCHLORIDE [Concomitant]
     Active Substance: PAROXETINE HYDROCHLORIDE
     Dosage: UNK
     Dates: start: 20230525
  4. PROAIR HFA [Concomitant]
     Active Substance: ALBUTEROL SULFATE
     Dosage: 0000
     Dates: start: 20191001
  5. EPIPEN [Concomitant]
     Active Substance: EPINEPHRINE
     Dosage: 0000
     Dates: start: 20191001
  6. ALLEGRA ALLERGY [Concomitant]
     Active Substance: FEXOFENADINE HYDROCHLORIDE
     Dosage: 0000
     Dates: start: 20191001
  7. XYZAL [Concomitant]
     Active Substance: LEVOCETIRIZINE DIHYDROCHLORIDE
     Dosage: 0000
     Dates: start: 20191001
  8. CLARITINE ALLERGY [Concomitant]
     Dosage: 0000
     Dates: start: 20191001
  9. PROPOFOL [Concomitant]
     Active Substance: PROPOFOL
     Dosage: 0000

REACTIONS (2)
  - Surgery [Unknown]
  - Depression [Unknown]

NARRATIVE: CASE EVENT DATE: 20230608
